FAERS Safety Report 17413171 (Version 1)
Quarter: 2020Q1

REPORT INFORMATION
  Report Type: Spontaneous
  Country: CA (occurrence: CA)
  Receive Date: 20200213
  Receipt Date: 20200213
  Transmission Date: 20200409
  Serious: Yes (Other)
  Sender: FDA-Public Use
  Company Number: CA-ROCHE-2547873

PATIENT
  Sex: Female

DRUGS (6)
  1. DIPHENHYDRAMINE. [Concomitant]
     Active Substance: DIPHENHYDRAMINE
     Indication: PREMEDICATION
     Route: 048
  2. RITUXAN [Suspect]
     Active Substance: RITUXIMAB
     Indication: RHEUMATOID ARTHRITIS
     Route: 042
  3. ACETAMINOPHEN. [Concomitant]
     Active Substance: ACETAMINOPHEN
     Indication: PREMEDICATION
     Route: 048
  4. AMOXICILLIN/CLAVULANIC ACID [Suspect]
     Active Substance: AMOXICILLIN\CLAVULANIC ACID
     Indication: PRODUCT USED FOR UNKNOWN INDICATION
     Route: 065
  5. PROLIA [Suspect]
     Active Substance: DENOSUMAB
     Indication: PRODUCT USED FOR UNKNOWN INDICATION
     Dosage: PROLIA PRE-FILLED SYRINGE. PRESERVATIVE-FREE.
     Route: 065
  6. PREDNISOLONE. [Concomitant]
     Active Substance: PREDNISOLONE
     Indication: PREMEDICATION
     Route: 042

REACTIONS (10)
  - Drug hypersensitivity [Recovered/Resolved]
  - Jaundice [Recovered/Resolved]
  - Nausea [Recovered/Resolved]
  - Blood immunoglobulin G decreased [Recovered/Resolved]
  - Influenza [Recovered/Resolved]
  - Jaw disorder [Recovered/Resolved]
  - Liver function test abnormal [Recovered/Resolved]
  - Pneumonia [Recovered/Resolved]
  - Blood immunoglobulin M decreased [Recovered/Resolved]
  - Weight decreased [Recovered/Resolved]
